FAERS Safety Report 9110630 (Version 1)
Quarter: 2013Q1

REPORT INFORMATION
  Report Type: Spontaneous
  Country: US (occurrence: US)
  Receive Date: 20130219
  Receipt Date: 20130219
  Transmission Date: 20140127
  Serious: Yes (Hospitalization, Other)
  Sender: FDA-Public Use
  Company Number: US-BRISTOL-MYERS SQUIBB COMPANY-16620254

PATIENT
  Age: 55 Year
  Sex: Female
  Weight: 51.7 kg

DRUGS (9)
  1. ORENCIA [Suspect]
     Indication: RHEUMATOID ARTHRITIS
     Dosage: FIRST INFUSION: FIRST WEEK OF MAY.LAST INF IS LAST WEEK OF MAY?LAST INF ON 6NV12
     Route: 042
     Dates: start: 201205
  2. ELMIRON [Concomitant]
  3. LYRICA [Concomitant]
  4. TRAMADOL [Concomitant]
  5. NEXIUM [Concomitant]
  6. INDERAL [Concomitant]
  7. DOMPERIDONE [Concomitant]
  8. ESTROGEN PATCH [Concomitant]
  9. XANAX [Concomitant]
     Dosage: AT BED TIME

REACTIONS (6)
  - Enteritis infectious [Not Recovered/Not Resolved]
  - Tuberculosis [Unknown]
  - Weight decreased [Unknown]
  - Aphthous stomatitis [Not Recovered/Not Resolved]
  - Drug ineffective [Unknown]
  - Stress [Not Recovered/Not Resolved]
